FAERS Safety Report 22149266 (Version 1)
Quarter: 2023Q1

REPORT INFORMATION
  Report Type: Spontaneous
  Country: US (occurrence: US)
  Receive Date: 20230329
  Receipt Date: 20230329
  Transmission Date: 20230418
  Serious: No
  Sender: FDA-Public Use
  Company Number: US-drreddys-SPO/USA/23/0161247

PATIENT
  Age: 23 Year
  Sex: Female

DRUGS (2)
  1. ZENATANE [Suspect]
     Active Substance: ISOTRETINOIN
     Indication: Product used for unknown indication
     Dosage: RMA ISSUE DATES: 08 JULY 2022 05:30:02 PM, 19 AUGUST 2022 10:37:30 AM
  2. ZENATANE [Suspect]
     Active Substance: ISOTRETINOIN
     Dosage: RMA ISSUE DATES: 21 SEPTEMBER 2022 07:43:33 AM, 21 OCTOBER 2022 09:21:22 AM, 30 NOVEMBER 2022 02:16:

REACTIONS (1)
  - Arthralgia [Unknown]
